FAERS Safety Report 5149599-0 (Version None)
Quarter: 2006Q4

REPORT INFORMATION
  Report Type: 
  Country: None (occurrence: None)
  Receive Date: 20061113
  Receipt Date: 20060605
  Transmission Date: 20070319
  Serious: No
  Sender: FDA-Public Use
  Company Number: US-GLAXOSMITHKLINE-A0607915A

PATIENT
  Age: 27 Year
  Sex: Male

DRUGS (4)
  1. COREG [Suspect]
     Dosage: 100MG TWICE PER DAY
     Route: 048
  2. TOPROL-XL [Concomitant]
  3. BENICAR [Concomitant]
  4. GLUCOPHAGE [Concomitant]

REACTIONS (1)
  - PRESCRIBED OVERDOSE [None]
